FAERS Safety Report 14195085 (Version 1)
Quarter: 2017Q4

REPORT INFORMATION
  Report Type: Spontaneous
  Country: US (occurrence: US)
  Receive Date: 20171116
  Receipt Date: 20171116
  Transmission Date: 20180321
  Serious: No
  Sender: FDA-Public Use
  Company Number: US-PFIZER INC-2017492156

PATIENT
  Age: 7 Decade
  Sex: Female
  Weight: 54 kg

DRUGS (2)
  1. NEURONTIN [Suspect]
     Active Substance: GABAPENTIN
     Dosage: UNK UNK, 2X/DAY
     Dates: start: 20171109
  2. NEURONTIN [Suspect]
     Active Substance: GABAPENTIN
     Dosage: UNK UNK, 1X/DAY
     Dates: start: 201711

REACTIONS (1)
  - Night sweats [Recovered/Resolved]

NARRATIVE: CASE EVENT DATE: 20171109
